FAERS Safety Report 12952275 (Version 1)
Quarter: 2016Q4

REPORT INFORMATION
  Report Type: Report from Study
  Country: US (occurrence: US)
  Receive Date: 20161117
  Receipt Date: 20161117
  Transmission Date: 20170207
  Serious: Yes (Other)
  Sender: FDA-Public Use
  Company Number: US-UCBSA-2016043684

PATIENT
  Sex: Male

DRUGS (5)
  1. ONFI [Suspect]
     Active Substance: CLOBAZAM
     Indication: EPILEPSY
     Dosage: 35 MG/ DAY
     Dates: end: 2014
  2. MIRALAX [Concomitant]
     Active Substance: POLYETHYLENE GLYCOL 3350
     Indication: RASH
     Dosage: UNK
  3. ONFI [Suspect]
     Active Substance: CLOBAZAM
     Dosage: 35 MG/DAY TO 3 MG /DAY
     Dates: start: 2014
  4. BANZEL [Concomitant]
     Active Substance: RUFINAMIDE
     Indication: RASH
     Dosage: UNK
  5. LEVETIRACETAM. [Suspect]
     Active Substance: LEVETIRACETAM
     Indication: EPILEPSY
     Dosage: HIGH DOSE

REACTIONS (9)
  - Partial seizures [Unknown]
  - Visual acuity reduced [Unknown]
  - Rash [Unknown]
  - Balance disorder [Recovering/Resolving]
  - Stubbornness [Unknown]
  - Abnormal behaviour [Recovering/Resolving]
  - Generalised tonic-clonic seizure [Recovering/Resolving]
  - Cognitive disorder [Recovering/Resolving]
  - Insomnia [Recovering/Resolving]
